FAERS Safety Report 7586161-4 (Version None)
Quarter: 2011Q2

REPORT INFORMATION
  Report Type: 
  Country: None (occurrence: None)
  Receive Date: 20110629
  Receipt Date: 20110629
  Transmission Date: 20111010
  Serious: Yes (Other)
  Sender: FDA-Public Use
  Company Number: None

PATIENT
  Sex: Male
  Weight: 63.05 kg

DRUGS (10)
  1. ASPIRIN [Concomitant]
  2. VIT C [Concomitant]
  3. CIALIS [Concomitant]
  4. VIT E [Concomitant]
  5. FISH OIL [Concomitant]
  6. ZESTRIL [Concomitant]
  7. ANDROGEL [Concomitant]
  8. ARICEPT [Suspect]
     Indication: DEMENTIA
     Dosage: 10MG 1-NIGHT
     Dates: start: 20100801
  9. LIPITOR [Concomitant]
  10. MULTIV [Concomitant]

REACTIONS (3)
  - TREMOR [None]
  - BALANCE DISORDER [None]
  - DIZZINESS [None]
